FAERS Safety Report 15542465 (Version 1)
Quarter: 2018Q4

REPORT INFORMATION
  Report Type: Spontaneous
  Country: US (occurrence: US)
  Receive Date: 20181023
  Receipt Date: 20181023
  Transmission Date: 20190205
  Serious: No
  Sender: FDA-Public Use
  Company Number: US-TEVA-2018-US-965174

PATIENT
  Sex: Female
  Weight: 52 kg

DRUGS (1)
  1. CLARAVIS [Suspect]
     Active Substance: ISOTRETINOIN
     Route: 065
     Dates: end: 20181014

REACTIONS (5)
  - Neck pain [Recovering/Resolving]
  - Pain [Unknown]
  - Tendon injury [Unknown]
  - Musculoskeletal pain [Recovering/Resolving]
  - Rotator cuff syndrome [Unknown]

NARRATIVE: CASE EVENT DATE: 201808
